FAERS Safety Report 21188910 (Version 3)
Quarter: 2023Q1

REPORT INFORMATION
  Report Type: Report from Study
  Country: US (occurrence: US)
  Receive Date: 20220809
  Receipt Date: 20230218
  Transmission Date: 20230418
  Serious: Yes (Other)
  Sender: FDA-Public Use
  Company Number: US-NOVARTISPH-NVSC2022US179194

PATIENT
  Age: 62 Year
  Sex: Female

DRUGS (3)
  1. GLEEVEC [Suspect]
     Active Substance: IMATINIB MESYLATE
     Indication: Eosinophilia
     Dosage: UNK
     Route: 065
  2. GLEEVEC [Suspect]
     Active Substance: IMATINIB MESYLATE
     Dosage: 100 MG, OTHER (200 MG EVERY OTHER DAY ALTERNATING WITH 100MG)
     Route: 048
     Dates: start: 20151006
  3. GLEEVEC [Suspect]
     Active Substance: IMATINIB MESYLATE
     Dosage: 200 MG, QOD
     Route: 048
     Dates: start: 20151007

REACTIONS (8)
  - Brain injury [Unknown]
  - Dry mouth [Unknown]
  - Glossodynia [Unknown]
  - Sinusitis [Unknown]
  - Tooth loss [Unknown]
  - Hypoacusis [Unknown]
  - Tremor [Unknown]
  - Product use in unapproved indication [Unknown]

NARRATIVE: CASE EVENT DATE: 20220202
